FAERS Safety Report 5355138-1 (Version None)
Quarter: 2007Q2

REPORT INFORMATION
  Report Type: 
  Country: None (occurrence: None)
  Receive Date: 20070511
  Receipt Date: 20070119
  Transmission Date: 20071010
  Serious: Yes (Hospitalization)
  Sender: FDA-Public Use
  Company Number: WAES 0701USA03411

PATIENT
  Age: 80 Year
  Sex: Female

DRUGS (4)
  1. FOSAMAX PLUS D [Suspect]
     Indication: BONE DENSITY INCREASED
     Dosage: 70MG-2800 IU/WKY/PO
     Route: 048
     Dates: start: 20050725
  2. HYZAAR [Concomitant]
  3. OS-CAL [Concomitant]
  4. PROPRANOLOL HYDROCHLORIDE [Concomitant]

REACTIONS (1)
  - DYSPHAGIA [None]
